FAERS Safety Report 23795573 (Version 1)
Quarter: 2024Q2

REPORT INFORMATION
  Report Type: Spontaneous
  Country: US (occurrence: US)
  Receive Date: 20240429
  Receipt Date: 20240429
  Transmission Date: 20240716
  Serious: No
  Sender: FDA-Public Use
  Company Number: US-BIOGEN-2024BI01255589

PATIENT
  Sex: Female

DRUGS (1)
  1. TYSABRI [Suspect]
     Active Substance: NATALIZUMAB
     Indication: Multiple sclerosis
     Route: 050
     Dates: start: 20181108

REACTIONS (5)
  - Infection [Unknown]
  - Thyroid disorder [Unknown]
  - Gait disturbance [Unknown]
  - Optic neuritis [Unknown]
  - Tooth infection [Unknown]
